FAERS Safety Report 15980306 (Version 3)
Quarter: 2021Q4

REPORT INFORMATION
  Report Type: Report from Study
  Country: CR (occurrence: CR)
  Receive Date: 20190219
  Receipt Date: 20211009
  Transmission Date: 20220304
  Serious: Yes (Other)
  Sender: FDA-Public Use
  Company Number: PHHY2019CR037111

PATIENT
  Age: 87 Year
  Sex: Female

DRUGS (6)
  1. DIOVAN [Suspect]
     Active Substance: VALSARTAN
     Indication: Hypertension
     Dosage: 1 DF, QD
     Route: 048
  2. EXFORGE [Suspect]
     Active Substance: AMLODIPINE BESYLATE\VALSARTAN
     Indication: Product used for unknown indication
     Dosage: 5/320 MG (APPROXIMATLY 2 YEARS AGO)
     Route: 065
     Dates: end: 2021
  3. EXFORGE [Suspect]
     Active Substance: AMLODIPINE BESYLATE\VALSARTAN
     Dosage: 10/320 MG (AT THE BEGINING)
     Route: 065
     Dates: start: 2021
  4. EXFORGE [Suspect]
     Active Substance: AMLODIPINE BESYLATE\VALSARTAN
     Dosage: 5/320 MG (1 MONTH AGO)
     Route: 065
  5. INDAPAMIDE [Concomitant]
     Active Substance: INDAPAMIDE
     Indication: Hypertension
     Dosage: 1 DF, QD
     Route: 048
  6. BISOPROLOL FUMARATE [Concomitant]
     Active Substance: BISOPROLOL FUMARATE
     Indication: Hypertension
     Dosage: 1 DF, QD
     Route: 048

REACTIONS (11)
  - Peripheral swelling [Unknown]
  - Visual impairment [Unknown]
  - Dairy intolerance [Recovered/Resolved]
  - General physical health deterioration [Unknown]
  - Memory impairment [Unknown]
  - Peripheral vascular disorder [Unknown]
  - Viral infection [Recovered/Resolved]
  - Blood pressure increased [Unknown]
  - Diarrhoea [Recovered/Resolved]
  - Hypertension [Unknown]
  - Myalgia [Unknown]
